FAERS Safety Report 14374706 (Version 4)
Quarter: 2018Q2

REPORT INFORMATION
  Report Type: Spontaneous
  Country: US (occurrence: US)
  Receive Date: 20180111
  Receipt Date: 20180515
  Transmission Date: 20180711
  Serious: Yes (Hospitalization, Other)
  Sender: FDA-Public Use
  Company Number: US-LUPIN PHARMACEUTICALS INC.-2017-07672

PATIENT
  Sex: Female
  Weight: 77 kg

DRUGS (4)
  1. POTASSIUM CHLORIDE EXTENDED RELEASE CAPSULE USP 750 MG (10 MEQ K) [Suspect]
     Active Substance: POTASSIUM CHLORIDE
     Indication: HEART RATE IRREGULAR
  2. PREDNISONE. [Concomitant]
     Active Substance: PREDNISONE
     Indication: PRODUCT USED FOR UNKNOWN INDICATION
     Dosage: UNK
     Route: 065
  3. BENADRYL [Concomitant]
     Active Substance: DIPHENHYDRAMINE HYDROCHLORIDE
     Indication: PRODUCT USED FOR UNKNOWN INDICATION
     Dosage: UNK
     Route: 065
  4. POTASSIUM CHLORIDE EXTENDED RELEASE CAPSULE USP 750 MG (10 MEQ K) [Suspect]
     Active Substance: POTASSIUM CHLORIDE
     Indication: TACHYCARDIA
     Dosage: 750 , QID, 12 YEARS AGO
     Route: 048

REACTIONS (2)
  - Urinary tract infection [Unknown]
  - Oral candidiasis [Unknown]

NARRATIVE: CASE EVENT DATE: 2016
